FAERS Safety Report 6601841-2 (Version None)
Quarter: 2010Q1

REPORT INFORMATION
  Report Type: 
  Country: None (occurrence: None)
  Receive Date: 20100218
  Receipt Date: 20100211
  Transmission Date: 20100710
  Serious: Yes (Other)
  Sender: FDA-Public Use
  Company Number: 2010SP008572

PATIENT
  Age: 35 Year
  Sex: Female

DRUGS (10)
  1. DESLORATADINE [Suspect]
     Indication: HYPERSENSITIVITY
     Dosage: 5 MG
     Dates: start: 20090101
  2. DESLORATADINE [Suspect]
     Indication: URTICARIA
     Dosage: 5 MG
     Dates: start: 20090101
  3. EBASTINE [Suspect]
     Indication: DRUG USE FOR UNKNOWN INDICATION
  4. ABSENOR (VALPROINSYRA) [Concomitant]
  5. SINGULAIR [Concomitant]
  6. NASONEX [Concomitant]
  7. FULMICORT [Concomitant]
  8. LITHIUM [Concomitant]
  9. ZOLOFT [Concomitant]
  10. TRIONETTA [Concomitant]

REACTIONS (3)
  - ANGIOEDEMA [None]
  - BURNING SENSATION [None]
  - PAIN IN EXTREMITY [None]
